FAERS Safety Report 18675331 (Version 1)
Quarter: 2020Q4

REPORT INFORMATION
  Report Type: Spontaneous
  Country: RO (occurrence: RO)
  Receive Date: 20201229
  Receipt Date: 20201229
  Transmission Date: 20210114
  Serious: Yes (Other)
  Sender: FDA-Public Use
  Company Number: NVSC2020RO340359

PATIENT
  Age: 63 Year
  Sex: Female
  Weight: 73 kg

DRUGS (2)
  1. ZARZIO [Suspect]
     Active Substance: FILGRASTIM
     Indication: BREAST MASS
     Dosage: UNK
     Route: 065
  2. HERCEPTIN [Suspect]
     Active Substance: TRASTUZUMAB
     Indication: BREAST MASS
     Dosage: 600 MG
     Route: 065

REACTIONS (7)
  - Malaise [Unknown]
  - Epistaxis [Unknown]
  - Mass [Unknown]
  - Blood pressure increased [Unknown]
  - Dry mouth [Unknown]
  - Syncope [Unknown]
  - Dizziness [Unknown]
